FAERS Safety Report 7777286-9 (Version None)
Quarter: 2011Q3

REPORT INFORMATION
  Report Type: 
  Country: None (occurrence: None)
  Receive Date: 20110926
  Receipt Date: 20110913
  Transmission Date: 20111222
  Serious: Yes (Other)
  Sender: FDA-Public Use
  Company Number: US-BAYER-2011-086432

PATIENT

DRUGS (1)
  1. ASPIRIN [Suspect]
     Dosage: 1 DF, ONCE
     Route: 048
     Dates: start: 20110912, end: 20110912

REACTIONS (9)
  - THROAT IRRITATION [None]
  - FOREIGN BODY [None]
  - RETCHING [None]
  - OROPHARYNGEAL PAIN [None]
  - TONSILLAR HYPERTROPHY [None]
  - NASAL DISCOMFORT [None]
  - VOMITING [None]
  - ORAL DISCOMFORT [None]
  - DYSPNOEA [None]
